FAERS Safety Report 25125812 (Version 1)
Quarter: 2025Q1

REPORT INFORMATION
  Report Type: Spontaneous
  Country: CA (occurrence: CA)
  Receive Date: 20250326
  Receipt Date: 20250326
  Transmission Date: 20250409
  Serious: Yes (Other)
  Sender: PFIZER
  Company Number: CA-PFIZER INC-202400206129

PATIENT
  Age: 55 Year
  Sex: Male

DRUGS (2)
  1. ABRILADA [Suspect]
     Active Substance: ADALIMUMAB-AFZB
     Indication: Crohn^s disease
     Route: 058
     Dates: start: 20240320, end: 20250301
  2. PREDNISONE [Concomitant]
     Active Substance: PREDNISONE
     Dates: start: 20240106

REACTIONS (4)
  - Intestinal resection [Unknown]
  - Condition aggravated [Unknown]
  - Iron deficiency anaemia [Unknown]
  - Drug level decreased [Unknown]
